FAERS Safety Report 21024475 (Version 2)
Quarter: 2022Q3

REPORT INFORMATION
  Report Type: Spontaneous
  Country: US (occurrence: US)
  Receive Date: 20220629
  Receipt Date: 20220809
  Transmission Date: 20221027
  Serious: No
  Sender: FDA-Public Use
  Company Number: US-LUNDBECK-DKLU3048721

PATIENT
  Age: 55 Year
  Sex: Male

DRUGS (2)
  1. VYEPTI [Suspect]
     Active Substance: EPTINEZUMAB-JJMR
     Indication: Migraine
     Route: 041
     Dates: start: 20220527
  2. SUMATRIPTAN [Concomitant]
     Active Substance: SUMATRIPTAN
     Indication: Headache
     Route: 065

REACTIONS (8)
  - Dysgeusia [Recovered/Resolved]
  - Paraesthesia [Unknown]
  - Paranasal sinus hypersecretion [Unknown]
  - Nausea [Unknown]
  - Migraine [Unknown]
  - Nasopharyngitis [Unknown]
  - Fatigue [Unknown]
  - Therapeutic product effect decreased [Not Recovered/Not Resolved]

NARRATIVE: CASE EVENT DATE: 20220101
